FAERS Safety Report 8716882 (Version 4)
Quarter: 2015Q3

REPORT INFORMATION
  Report Type: Report from Study
  Country: GB (occurrence: GB)
  Receive Date: 20120810
  Receipt Date: 20150707
  Transmission Date: 20151125
  Serious: Yes (Hospitalization)
  Sender: FDA-Public Use
  Company Number: GB-MPIJNJ-2012-04938

PATIENT

DRUGS (26)
  1. SYMBICORT [Concomitant]
     Active Substance: BUDESONIDE\FORMOTEROL FUMARATE DIHYDRATE
     Dosage: 400 ?G, UNK
     Route: 065
     Dates: start: 20120504
  2. OMEPRAZOLE. [Concomitant]
     Active Substance: OMEPRAZOLE
     Dosage: 20 MG, UNK
     Route: 048
     Dates: start: 20120403
  3. COTRIMOXAZOLE [Concomitant]
     Active Substance: SULFAMETHOXAZOLE\TRIMETHOPRIM
     Dosage: 480 MG, UNK
     Route: 048
     Dates: start: 20120403
  4. FLUCONAZOLE. [Concomitant]
     Active Substance: FLUCONAZOLE
     Dosage: 50 MG, UNK
     Route: 048
     Dates: start: 20120403, end: 20120711
  5. RITUXIMAB [Suspect]
     Active Substance: RITUXIMAB
     Indication: DIFFUSE LARGE B-CELL LYMPHOMA
     Dosage: 750 MG, UNK
     Route: 065
     Dates: start: 20120403, end: 20120704
  6. DOXORUBICIN [Suspect]
     Active Substance: DOXORUBICIN
     Indication: DIFFUSE LARGE B-CELL LYMPHOMA
     Dosage: 100 MG, UNK
     Route: 065
     Dates: start: 20120403, end: 20120704
  7. METOCLOPRAMIDE. [Concomitant]
     Active Substance: METOCLOPRAMIDE
     Dosage: 20 MG, UNK
     Route: 048
     Dates: start: 20120403
  8. PREDNISOLONE. [Suspect]
     Active Substance: PREDNISOLONE
     Indication: DIFFUSE LARGE B-CELL LYMPHOMA
     Dosage: 100 MG, UNK
     Route: 065
     Dates: start: 20120403, end: 20120708
  9. PREDNISOLONE. [Concomitant]
     Active Substance: PREDNISOLONE
     Dosage: 100 MG, UNK
     Route: 048
     Dates: start: 20120403
  10. VELCADE [Suspect]
     Active Substance: BORTEZOMIB
     Indication: DIFFUSE LARGE B-CELL LYMPHOMA
     Dosage: 2.6 MG, UNK
     Route: 065
     Dates: start: 20120424, end: 20120704
  11. VINCRISTINE [Suspect]
     Active Substance: VINCRISTINE
     Indication: DIFFUSE LARGE B-CELL LYMPHOMA
     Dosage: 2 MG, UNK
     Route: 065
     Dates: start: 20120403, end: 20120704
  12. CETRABEN                           /01561901/ [Concomitant]
     Dosage: UNK
     Route: 061
     Dates: start: 20091221
  13. VENTOLIN [Concomitant]
     Active Substance: ALBUTEROL SULFATE
     Dosage: UNK MG, UNK
     Route: 065
     Dates: start: 20090406
  14. MONTELUKAST [Concomitant]
     Active Substance: MONTELUKAST SODIUM
     Dosage: 10 MG, UNK
     Route: 048
     Dates: start: 20111004
  15. TRAMADOL. [Concomitant]
     Active Substance: TRAMADOL
     Dosage: 100 MG, UNK
     Route: 048
     Dates: start: 20120313
  16. CHLORHEXIDINE [Concomitant]
     Active Substance: CHLORHEXIDINE
     Dosage: 10 ML, UNK
     Dates: start: 20120403
  17. ITRACONAZOLE. [Concomitant]
     Active Substance: ITRACONAZOLE
     Dosage: 200 MG, UNK
     Route: 048
     Dates: start: 20120711, end: 20120723
  18. VENTOLIN [Concomitant]
     Active Substance: ALBUTEROL SULFATE
     Dosage: UNK MG, UNK
     Dates: start: 20090406
  19. CITALOPRAM [Concomitant]
     Active Substance: CITALOPRAM HYDROBROMIDE
     Dosage: 10 MG, UNK
     Route: 048
     Dates: start: 20080918
  20. VELCADE [Suspect]
     Active Substance: BORTEZOMIB
     Dosage: 2.6 MG, UNK
     Route: 065
     Dates: start: 20120424, end: 20120704
  21. CLEXANE [Concomitant]
     Active Substance: ENOXAPARIN SODIUM
     Dosage: 150 MG, UNK
     Route: 058
     Dates: start: 20120423
  22. ACICLOVIR [Concomitant]
     Active Substance: ACYCLOVIR
     Dosage: 400 MG, UNK
     Route: 048
     Dates: start: 20120403
  23. CYCLOPHOSPHAMIDE. [Suspect]
     Active Substance: CYCLOPHOSPHAMIDE
     Indication: DIFFUSE LARGE B-CELL LYMPHOMA
     Dosage: 1500 MG, UNK
     Route: 065
     Dates: start: 20120403, end: 20120704
  24. FERROUS FUMARATE [Concomitant]
     Active Substance: FERROUS FUMARATE
     Dosage: 210 MG, UNK
     Route: 048
     Dates: start: 20120127
  25. CARBIMAZOLE [Concomitant]
     Active Substance: CARBIMAZOLE
     Dosage: 5 MG, UNK
     Route: 048
     Dates: start: 20111206
  26. NITROFURANTOIN. [Concomitant]
     Active Substance: NITROFURANTOIN
     Dosage: UNK
     Route: 048
     Dates: start: 20120713, end: 20120717

REACTIONS (5)
  - Anaemia [Unknown]
  - Dizziness [Recovered/Resolved]
  - Lethargy [Not Recovered/Not Resolved]
  - Pulmonary mycosis [Recovered/Resolved]
  - Diarrhoea [Recovered/Resolved with Sequelae]

NARRATIVE: CASE EVENT DATE: 20120709
